FAERS Safety Report 15554819 (Version 1)
Quarter: 2018Q4

REPORT INFORMATION
  Report Type: Spontaneous
  Country: GB (occurrence: GB)
  Receive Date: 20181026
  Receipt Date: 20181026
  Transmission Date: 20190205
  Serious: Yes (Other)
  Sender: FDA-Public Use
  Company Number: GB-BAUSCH-BL-2018-028710

PATIENT
  Age: 62 Year
  Sex: Female

DRUGS (12)
  1. LERCANIDIPINE [Suspect]
     Active Substance: LERCANIDIPINE
     Dosage: AT 12 PM
     Route: 065
     Dates: start: 2013
  2. LOSARTAN. [Suspect]
     Active Substance: LOSARTAN
     Route: 065
     Dates: start: 2013
  3. ENALAPRIL [Suspect]
     Active Substance: ENALAPRIL
     Indication: HYPERTENSION
     Route: 065
  4. METFORMIN [Concomitant]
     Active Substance: METFORMIN HYDROCHLORIDE
     Indication: PRODUCT USED FOR UNKNOWN INDICATION
  5. LOSARTAN. [Suspect]
     Active Substance: LOSARTAN
     Indication: HYPERTENSION
     Route: 065
  6. SODIUM VALPROATE [Concomitant]
     Active Substance: VALPROATE SODIUM
     Indication: PRODUCT USED FOR UNKNOWN INDICATION
  7. BISOPROLOL [Suspect]
     Active Substance: BISOPROLOL
     Indication: HYPERTENSION
     Route: 065
  8. INDAPAMIDE. [Suspect]
     Active Substance: INDAPAMIDE
     Dosage: 9 AM ON THE DAY OF DIRECTLY OBSERVED THERAPY
     Route: 065
     Dates: start: 2013
  9. ENALAPRIL [Suspect]
     Active Substance: ENALAPRIL
     Dosage: 9 AM ON THE DAY OF DIRECTLY OBSERVED THERAPY
     Route: 065
     Dates: start: 2013
  10. BISOPROLOL [Suspect]
     Active Substance: BISOPROLOL
     Dosage: 9 AM ON THE DAY OF DIRECTLY OBSERVED THERAPY
     Route: 065
     Dates: start: 2013
  11. LERCANIDIPINE [Suspect]
     Active Substance: LERCANIDIPINE
     Indication: HYPERTENSION
     Route: 065
  12. INDAPAMIDE. [Suspect]
     Active Substance: INDAPAMIDE
     Indication: HYPERTENSION
     Route: 065

REACTIONS (1)
  - Therapy non-responder [Unknown]
